FAERS Safety Report 8555211-0 (Version None)
Quarter: 2012Q3

REPORT INFORMATION
  Report Type: 
  Country: None (occurrence: None)
  Receive Date: 20120731
  Receipt Date: 20120725
  Transmission Date: 20120928
  Serious: Yes (Other)
  Sender: FDA-Public Use
  Company Number: JP-009507513-1207JPN011742

PATIENT

DRUGS (6)
  1. BETAHISTINE MESYLATE [Concomitant]
     Route: 048
  2. VALSARTAN [Concomitant]
     Route: 048
  3. REBAMIPIDE [Concomitant]
     Route: 048
  4. MIRTAZAPINE [Suspect]
     Dosage: 7.5 MG, ONCE
     Route: 048
     Dates: start: 20120706, end: 20120706
  5. MECOBALAMIN [Concomitant]
     Route: 048
  6. LANSOPRAZOLE [Concomitant]
     Route: 048

REACTIONS (3)
  - COMA [None]
  - HYPOAESTHESIA [None]
  - THIRST [None]
